FAERS Safety Report 6506519-1 (Version None)
Quarter: 2009Q4

REPORT INFORMATION
  Report Type: 
  Country: None (occurrence: None)
  Receive Date: 20091221
  Receipt Date: 20091210
  Transmission Date: 20100525
  Serious: Yes (Hospitalization)
  Sender: FDA-Public Use
  Company Number: AT-ASTRAZENECA-2009SE31264

PATIENT
  Age: 67 Year
  Sex: Female

DRUGS (3)
  1. ACEMIN [Suspect]
     Route: 048
  2. DILATREND [Concomitant]
  3. DOXAPRESS [Concomitant]

REACTIONS (4)
  - BLOOD GLUCOSE ABNORMAL [None]
  - DEPRESSED LEVEL OF CONSCIOUSNESS [None]
  - DIZZINESS [None]
  - LOSS OF CONSCIOUSNESS [None]
